FAERS Safety Report 21490358 (Version 1)
Quarter: 2022Q4

REPORT INFORMATION
  Report Type: Other
  Country: DE (occurrence: None)
  Receive Date: 20221021
  Receipt Date: 20221021
  Transmission Date: 20230113
  Serious: Yes (Death, Hospitalization, Other)
  Sender: FDA-Public Use
  Company Number: DE-ROCHE-3200892

PATIENT
  Age: 59 Year
  Sex: Male

DRUGS (15)
  1. MYCOPHENOLATE MOFETIL [Suspect]
     Active Substance: MYCOPHENOLATE MOFETIL
     Indication: Prophylaxis against transplant rejection
     Route: 065
     Dates: start: 20201025, end: 20201117
  2. MYCOPHENOLATE MOFETIL [Suspect]
     Active Substance: MYCOPHENOLATE MOFETIL
     Route: 065
     Dates: start: 20201118, end: 20201127
  3. MYCOPHENOLATE MOFETIL [Suspect]
     Active Substance: MYCOPHENOLATE MOFETIL
     Route: 065
     Dates: start: 20201127, end: 20210106
  4. MYCOPHENOLATE MOFETIL [Suspect]
     Active Substance: MYCOPHENOLATE MOFETIL
     Route: 065
     Dates: start: 20210106, end: 20210201
  5. MYCOPHENOLATE MOFETIL [Suspect]
     Active Substance: MYCOPHENOLATE MOFETIL
     Route: 065
     Dates: start: 20210201, end: 20210303
  6. PREDNISOLONE [Suspect]
     Active Substance: PREDNISOLONE
     Indication: Prophylaxis against transplant rejection
     Route: 042
     Dates: start: 20201025, end: 20201117
  7. PREDNISOLONE [Suspect]
     Active Substance: PREDNISOLONE
     Route: 042
     Dates: start: 20201117, end: 20201209
  8. PREDNISOLONE [Suspect]
     Active Substance: PREDNISOLONE
     Route: 042
     Dates: start: 20201210, end: 20210112
  9. PREDNISOLONE [Suspect]
     Active Substance: PREDNISOLONE
     Route: 042
     Dates: start: 20210112, end: 20210203
  10. PREDNISOLONE [Suspect]
     Active Substance: PREDNISOLONE
     Route: 042
     Dates: start: 20210204, end: 20210223
  11. TACROLIMUS [Suspect]
     Active Substance: TACROLIMUS
     Indication: Prophylaxis against transplant rejection
     Dosage: TROUGH LEVEL 15.4 NG/ML
     Route: 065
     Dates: start: 20201025, end: 20210127
  12. HYDROCORTISONE [Suspect]
     Active Substance: HYDROCORTISONE
     Indication: Prophylaxis against transplant rejection
     Route: 065
     Dates: start: 20210223, end: 20210303
  13. CYCLOSPORINE [Suspect]
     Active Substance: CYCLOSPORINE
     Indication: Prophylaxis against transplant rejection
     Route: 065
     Dates: start: 20210126, end: 20210303
  14. EVEROLIMUS [Suspect]
     Active Substance: EVEROLIMUS
     Indication: Prophylaxis against transplant rejection
     Route: 065
     Dates: start: 20210126, end: 20210303
  15. DEXAMETHASONE [Suspect]
     Active Substance: DEXAMETHASONE
     Indication: Prophylaxis against transplant rejection
     Route: 065

REACTIONS (12)
  - COVID-19 [Fatal]
  - Renal failure [Fatal]
  - Hepatic failure [Fatal]
  - Cardiac failure [Fatal]
  - Acute respiratory distress syndrome [Fatal]
  - Superinfection bacterial [Unknown]
  - Bronchitis bacterial [Unknown]
  - Pneumonia bacterial [Unknown]
  - Shock [Unknown]
  - Clostridium difficile infection [Unknown]
  - Pleural effusion [Unknown]
  - Wound infection [Unknown]

NARRATIVE: CASE EVENT DATE: 20201103
